FAERS Safety Report 8025328-8 (Version None)
Quarter: 2012Q1

REPORT INFORMATION
  Report Type: 
  Country: None (occurrence: None)
  Receive Date: 20120105
  Receipt Date: 20120102
  Transmission Date: 20120608
  Serious: Yes (Other)
  Sender: FDA-Public Use
  Company Number: FR-PFIZER INC-2011292889

PATIENT
  Age: 64 Year
  Sex: Male

DRUGS (5)
  1. DOSTINEX [Suspect]
     Indication: SECRETORY ADENOMA OF PITUITARY
     Dosage: 0.5 MG, WEEKLY
     Route: 048
     Dates: start: 20100810, end: 20110127
  2. LEVOTHYROXINE SODIUM [Concomitant]
     Dosage: UNK
     Dates: start: 20110810
  3. DOSTINEX [Suspect]
     Dosage: 0.5 MG, WEEKLY
     Route: 048
     Dates: start: 20110318
  4. HYDROCORTISONE [Concomitant]
     Dosage: UNK
     Dates: start: 20100810
  5. NORPROLAC [Suspect]
     Indication: SECRETORY ADENOMA OF PITUITARY
     Dosage: 75 UG, 1X/DAY
     Route: 048
     Dates: start: 20110203, end: 20110318

REACTIONS (3)
  - ADENOMA BENIGN [None]
  - PATHOLOGICAL GAMBLING [None]
  - IRRITABILITY [None]
